FAERS Safety Report 5440718-5 (Version None)
Quarter: 2007Q3

REPORT INFORMATION
  Report Type: 
  Country: None (occurrence: None)
  Receive Date: 20070731
  Receipt Date: 20070514
  Transmission Date: 20080115
  Serious: No
  Sender: FDA-Public Use
  Company Number: US200705003802

PATIENT
  Age: 48 Year
  Sex: Female
  Weight: 138.3 kg

DRUGS (4)
  1. BYETTA [Suspect]
     Indication: TYPE 2 DIABETES MELLITUS
     Dosage: 5 UG, 2/D; 5UG, 4/D; 10 UG, 2/D, SUBCUTANEOUS
     Route: 058
     Dates: start: 20070301, end: 20070401
  2. BYETTA [Suspect]
     Indication: TYPE 2 DIABETES MELLITUS
     Dosage: 5 UG, 2/D; 5UG, 4/D; 10 UG, 2/D, SUBCUTANEOUS
     Route: 058
     Dates: start: 20070410, end: 20070417
  3. BYETTA [Suspect]
     Indication: TYPE 2 DIABETES MELLITUS
     Dosage: 5 UG, 2/D; 5UG, 4/D; 10 UG, 2/D, SUBCUTANEOUS
     Route: 058
     Dates: start: 20070418
  4. EXENATIDE PEN (EXENATIDE PEN) [Concomitant]

REACTIONS (5)
  - ACCIDENTAL OVERDOSE [None]
  - MEDICATION ERROR [None]
  - NAUSEA [None]
  - VOMITING [None]
  - WEIGHT DECREASED [None]
